FAERS Safety Report 6231956-2 (Version None)
Quarter: 2009Q2

REPORT INFORMATION
  Report Type: 
  Country: None (occurrence: None)
  Receive Date: 20090616
  Receipt Date: 20080813
  Transmission Date: 20091009
  Serious: No
  Sender: FDA-Public Use
  Company Number: US-ABBOTT-08P-163-0470597-00

PATIENT
  Sex: Male

DRUGS (2)
  1. GENGRAF [Suspect]
     Indication: RENAL DISORDER
     Route: 048
     Dates: start: 20080201, end: 20080806
  2. GENGRAF [Suspect]
     Dates: start: 20060101, end: 20080201

REACTIONS (4)
  - ANOREXIA [None]
  - IRRITABILITY [None]
  - LETHARGY [None]
  - WITHDRAWAL SYNDROME [None]
